FAERS Safety Report 4531934-5 (Version None)
Quarter: 2004Q4

REPORT INFORMATION
  Report Type: 
  Country: None (occurrence: None)
  Receive Date: 20041220
  Receipt Date: 20041207
  Transmission Date: 20050328
  Serious: Yes (Hospitalization)
  Sender: FDA-Public Use
  Company Number: GB-GLAXOSMITHKLINE-B0360511A

PATIENT
  Age: 28 Year
  Sex: Male

DRUGS (1)
  1. NICOTINE [Suspect]
     Route: 065

REACTIONS (1)
  - COLITIS ULCERATIVE [None]
